FAERS Safety Report 26124526 (Version 1)
Quarter: 2025Q4

REPORT INFORMATION
  Report Type: Spontaneous
  Country: EU (occurrence: EU)
  Receive Date: 20251205
  Receipt Date: 20251205
  Transmission Date: 20260118
  Serious: Yes (Life-Threatening)
  Sender: GE HEALTHCARE
  Company Number: EU-GE HEALTHCARE-2025CSU017117

PATIENT
  Age: 57 Year
  Sex: Male
  Weight: 92 kg

DRUGS (1)
  1. CLARISCAN [Suspect]
     Active Substance: GADOTERATE MEGLUMINE
     Indication: Diagnostic procedure
     Dosage: 18 ML, TOTAL
     Route: 042
     Dates: start: 20251125, end: 20251125

REACTIONS (4)
  - Tachypnoea [Recovered/Resolved]
  - Hypotension [Recovered/Resolved]
  - Urticaria [Recovered/Resolved]
  - Pruritus [Recovered/Resolved]

NARRATIVE: CASE EVENT DATE: 20251125
